FAERS Safety Report 11157192 (Version 1)
Quarter: 2015Q2

REPORT INFORMATION
  Report Type: Spontaneous
  Country: US (occurrence: None)
  Receive Date: 20150601
  Receipt Date: 20150601
  Transmission Date: 20150821
  Serious: Yes (Hospitalization, Other)
  Sender: FDA-Public Use
  Company Number: None

PATIENT
  Age: 77 Year
  Sex: Male
  Weight: 100.7 kg

DRUGS (5)
  1. GLIPAZIDE [Concomitant]
  2. ZYDELIG [Suspect]
     Active Substance: IDELALISIB
     Indication: NON-HODGKIN^S LYMPHOMA
     Route: 048
     Dates: start: 20150324, end: 20150514
  3. METOTOPROL [Concomitant]
  4. ZETIA [Concomitant]
     Active Substance: EZETIMIBE
  5. ASPIRIN. [Concomitant]
     Active Substance: ASPIRIN

REACTIONS (9)
  - Pulmonary oedema [None]
  - Pneumonia [None]
  - Rash [None]
  - Blister [None]
  - Cardiac failure congestive [None]
  - Urinary tract infection [None]
  - Liver function test abnormal [None]
  - Blood test abnormal [None]
  - Oxygen consumption increased [None]

NARRATIVE: CASE EVENT DATE: 20150514
